FAERS Safety Report 23100568 (Version 2)
Quarter: 2024Q2

REPORT INFORMATION
  Report Type: Spontaneous
  Country: NO (occurrence: NO)
  Receive Date: 20231024
  Receipt Date: 20240503
  Transmission Date: 20240715
  Serious: Yes (Hospitalization)
  Sender: FDA-Public Use
  Company Number: NO-NALPROPION PHARMACEUTICALS INC.-NO-2023CUR004287

PATIENT
  Age: 53 Year
  Sex: Female

DRUGS (13)
  1. BUPROPION HYDROCHLORIDE\NALTREXONE HYDROCHLORIDE [Suspect]
     Active Substance: BUPROPION HYDROCHLORIDE\NALTREXONE HYDROCHLORIDE
     Indication: Product used for unknown indication
     Dosage: STRENGTH: 8/90 MG, SOMEWHAT UNCLEAR, PROBABLY 2 TABLETS IN THE MORNING AND 2 TABLETS IN THE EVENING
     Route: 048
  2. REMIFENTANIL [Concomitant]
     Active Substance: REMIFENTANIL
     Indication: Anaesthesia
     Dosage: 550 UG, 1 TOTAL
  3. REMIFENTANIL [Concomitant]
     Active Substance: REMIFENTANIL
     Indication: Eustachian tube operation
  4. SEVOFLURANE [Concomitant]
     Active Substance: SEVOFLURANE
     Indication: Eustachian tube operation
     Dosage: UNK
  5. SEVOFLURANE [Concomitant]
     Active Substance: SEVOFLURANE
     Indication: Anaesthesia
  6. FENTANYL [Concomitant]
     Active Substance: FENTANYL\FENTANYL CITRATE
     Indication: Eustachian tube operation
     Dosage: 200 UG, 1 TOTAL
  7. FENTANYL [Concomitant]
     Active Substance: FENTANYL\FENTANYL CITRATE
     Indication: Anaesthesia
  8. PROPOFOL [Concomitant]
     Active Substance: PROPOFOL
     Indication: Eustachian tube operation
     Dosage: (550 MG 1 TOTAL) (5.7 MG/KG REAL WEIGHT)
  9. PROPOFOL [Concomitant]
     Active Substance: PROPOFOL
     Indication: Anaesthesia
  10. FLUTICASONE PROPIONATE [Concomitant]
     Active Substance: FLUTICASONE PROPIONATE
     Indication: Hypersensitivity
     Dosage: 2 DF, 1 IN 12 HOUR
  11. LIPITOR [Concomitant]
     Active Substance: ATORVASTATIN CALCIUM
     Indication: Blood cholesterol increased
     Dosage: 1 DF, 1 DAY
  12. SERETIDE [Concomitant]
     Active Substance: FLUTICASONE PROPIONATE\SALMETEROL XINAFOATE
     Indication: Asthma
     Dosage: 1 DOSE IN THE MORNING 1 DOSE IN THE EVENING. POWDER FOR INHALATION, DOSEDISPENSED
  13. SINGULAIR [Concomitant]
     Active Substance: MONTELUKAST SODIUM
     Indication: Product used for unknown indication
     Dosage: UNK

REACTIONS (4)
  - Endotracheal intubation complication [Recovered/Resolved]
  - Anaesthetic complication [Recovered/Resolved]
  - Anaesthetic complication [Recovered/Resolved]
  - Drug ineffective [Recovered/Resolved]

NARRATIVE: CASE EVENT DATE: 20230904
